FAERS Safety Report 6015838-7 (Version None)
Quarter: 2008Q4

REPORT INFORMATION
  Report Type: 
  Country: None (occurrence: None)
  Receive Date: 20081222
  Receipt Date: 20081215
  Transmission Date: 20090506
  Serious: Yes (Hospitalization)
  Sender: FDA-Public Use
  Company Number: A0757488B

PATIENT
  Age: 64 Year
  Sex: Female
  Weight: 73 kg

DRUGS (10)
  1. ELTROMBOPAG [Suspect]
     Indication: IDIOPATHIC THROMBOCYTOPENIC PURPURA
     Route: 048
     Dates: start: 20061025, end: 20081123
  2. PRAZSOIN HCL [Concomitant]
     Indication: HYPERTENSION
     Dosage: 1MG TWICE PER DAY
     Route: 048
     Dates: start: 20020610, end: 20081126
  3. ATENOLOL [Concomitant]
     Indication: HYPERTENSION
     Dosage: 50MG PER DAY
     Route: 048
     Dates: start: 20061230, end: 20081126
  4. BETALOC [Concomitant]
     Indication: HYPERTENSION
     Dosage: 25MG TWICE PER DAY
     Route: 048
     Dates: start: 20081126
  5. PERINDOPRIL [Concomitant]
     Indication: HYPERTENSION
     Dosage: 4MG PER DAY
     Route: 048
     Dates: start: 20081126
  6. AUGMENTIN '125' [Concomitant]
     Indication: PROPHYLAXIS
     Dosage: 1000MG TWICE PER DAY
     Route: 048
     Dates: start: 20081126, end: 20081201
  7. METAMUCIL [Concomitant]
     Indication: CONSTIPATION PROPHYLAXIS
     Dosage: 10ML PER DAY
     Route: 048
     Dates: start: 20081126
  8. HYDROCORTISONE [Concomitant]
     Indication: PROPHYLAXIS
     Dosage: 200MG VARIABLE DOSE
     Route: 042
     Dates: start: 20081127, end: 20081127
  9. HEPARIN [Concomitant]
     Indication: PREMEDICATION
     Dosage: 2500UNIT SINGLE DOSE
     Route: 042
     Dates: start: 20081127, end: 20081127
  10. REOPRO [Concomitant]
     Indication: PREMEDICATION
     Dosage: 10MG TWICE PER DAY
     Route: 042
     Dates: start: 20081127, end: 20081127

REACTIONS (2)
  - ACUTE MYOCARDIAL INFARCTION [None]
  - CHEST PAIN [None]
